FAERS Safety Report 9803962 (Version 3)
Quarter: 2014Q1

REPORT INFORMATION
  Report Type: Spontaneous
  Country: HU (occurrence: HU)
  Receive Date: 20140108
  Receipt Date: 20140127
  Transmission Date: 20141002
  Serious: Yes (Death, Other)
  Sender: FDA-Public Use
  Company Number: HU-MALLINCKRODT-T201305200

PATIENT
  Age: 56 Year
  Sex: Male
  Weight: 140 kg

DRUGS (1)
  1. OPTIRAY [Suspect]
     Indication: COMPUTERISED TOMOGRAM
     Dosage: 160 ML, 2ML/SEC, SINGLE
     Route: 042
     Dates: start: 20131220, end: 20131220

REACTIONS (9)
  - Circulatory collapse [Fatal]
  - Respiratory arrest [Fatal]
  - Loss of consciousness [Unknown]
  - Dyspnoea [Unknown]
  - Incontinence [Unknown]
  - Flushing [Unknown]
  - Erythema [Unknown]
  - Syncope [Unknown]
  - Vomiting [Unknown]
